FAERS Safety Report 5338582-8 (Version None)
Quarter: 2007Q2

REPORT INFORMATION
  Report Type: 
  Country: None (occurrence: None)
  Receive Date: 20070322
  Receipt Date: 20060717
  Transmission Date: 20071010
  Serious: Yes (Other)
  Sender: FDA-Public Use
  Company Number: 200612328BCC

PATIENT
  Age: 70 Year
  Sex: Male
  Weight: 86.1834 kg

DRUGS (9)
  1. ALEVE (CAPLET) [Suspect]
     Indication: PAIN
     Dosage: 440 MG, BID, ORAL
     Route: 048
     Dates: start: 19910101
  2. LASIX [Concomitant]
  3. VALSARTAN [Concomitant]
  4. FUROSEMIDE [Concomitant]
  5. ATENOLOL [Concomitant]
  6. FLUVASTATIN [Concomitant]
  7. HUMALOG [Concomitant]
  8. GLARGINE [Concomitant]
  9. OMEPRAZOLE [Concomitant]

REACTIONS (1)
  - BLOOD PRESSURE INCREASED [None]
